FAERS Safety Report 12399136 (Version 1)
Quarter: 2016Q2

REPORT INFORMATION
  Report Type: Spontaneous
  Country: BR (occurrence: BR)
  Receive Date: 20160524
  Receipt Date: 20160524
  Transmission Date: 20160815
  Serious: Yes (Other)
  Sender: FDA-Public Use
  Company Number: BR-BAYER-2016-097000

PATIENT
  Age: 2 Year
  Sex: Male

DRUGS (1)
  1. MAGNEVISTAN [Suspect]
     Active Substance: GADOPENTETATE DIMEGLUMINE
     Indication: NUCLEAR MAGNETIC RESONANCE IMAGING
     Dosage: 3 ML, ONCE
     Route: 042
     Dates: start: 20160517, end: 20160517

REACTIONS (3)
  - Oxygen saturation decreased [None]
  - Tachycardia [None]
  - Apnoea [None]

NARRATIVE: CASE EVENT DATE: 20160517
